APPROVED DRUG PRODUCT: CLOTRIMAZOLE
Active Ingredient: CLOTRIMAZOLE
Strength: 1%
Dosage Form/Route: SOLUTION;TOPICAL
Application: A073306 | Product #001 | TE Code: AT
Applicant: TEVA PHARMACEUTICALS USA INC
Approved: Feb 28, 1995 | RLD: No | RS: No | Type: RX